FAERS Safety Report 12856565 (Version 5)
Quarter: 2021Q4

REPORT INFORMATION
  Report Type: Report from Study
  Country: DE (occurrence: DE)
  Receive Date: 20161018
  Receipt Date: 20211125
  Transmission Date: 20220303
  Serious: Yes (Hospitalization, Other)
  Sender: FDA-Public Use
  Company Number: PHHY2016DE101086

PATIENT
  Sex: Female
  Weight: 80 kg

DRUGS (10)
  1. GILENYA [Suspect]
     Active Substance: FINGOLIMOD HYDROCHLORIDE
     Indication: Relapsing-remitting multiple sclerosis
     Dosage: 0.5 MG, QD
     Route: 048
     Dates: start: 20160331, end: 20160720
  2. CALCIUM [Concomitant]
     Active Substance: CALCIUM
     Indication: Osteoporosis prophylaxis
     Dosage: 500 MG, BID (IN THE MORNING AND NIGHT)
     Route: 065
     Dates: start: 20160722
  3. CHOLECALCIFEROL [Concomitant]
     Active Substance: CHOLECALCIFEROL
     Indication: Osteoporosis prophylaxis
     Dosage: 1000 IU, QD (IN THE MORNING)
     Route: 065
     Dates: start: 20160722
  4. FOLIC ACID [Concomitant]
     Active Substance: FOLIC ACID
     Indication: Product used for unknown indication
     Dosage: UNK
     Route: 065
     Dates: start: 20010101
  5. PYRIDOSTIGMINE BROMIDE [Concomitant]
     Active Substance: PYRIDOSTIGMINE BROMIDE
     Indication: Muscular weakness
     Dosage: 90 MG, (EXTENDED RELEASE), AT NIGHTS
     Route: 065
  6. PYRIDOSTIGMINE BROMIDE [Concomitant]
     Active Substance: PYRIDOSTIGMINE BROMIDE
     Dosage: 180 UNK
     Route: 065
     Dates: start: 20160616
  7. PYRIDOSTIGMINE BROMIDE [Concomitant]
     Active Substance: PYRIDOSTIGMINE BROMIDE
     Dosage: 270 MG
     Route: 065
     Dates: end: 20170112
  8. PYRIDOSTIGMINE BROMIDE [Concomitant]
     Active Substance: PYRIDOSTIGMINE BROMIDE
     Dosage: 180 MG
     Route: 065
     Dates: start: 20170113, end: 20181107
  9. PYRIDOSTIGMINE BROMIDE [Concomitant]
     Active Substance: PYRIDOSTIGMINE BROMIDE
     Dosage: 150 MG
     Route: 065
     Dates: start: 20181108
  10. PANTOPRAZOLE [Concomitant]
     Active Substance: PANTOPRAZOLE
     Indication: Prophylaxis
     Dosage: 20 MG
     Route: 065
     Dates: start: 20161019

REACTIONS (22)
  - Myasthenia gravis [Not Recovered/Not Resolved]
  - Muscular weakness [Not Recovered/Not Resolved]
  - Mobility decreased [Unknown]
  - Fatigue [Recovered/Resolved]
  - Asthenia [Recovering/Resolving]
  - Paresis [Unknown]
  - Sensory disturbance [Unknown]
  - Visual impairment [Unknown]
  - Paraesthesia [Unknown]
  - Dysmetria [Unknown]
  - Upper motor neurone lesion [Unknown]
  - Hyperreflexia [Unknown]
  - Clonus [Unknown]
  - Adjustment disorder with anxiety [Unknown]
  - Agitated depression [Unknown]
  - Psychomotor hyperactivity [Unknown]
  - Hypoaesthesia [Unknown]
  - Tremor [Unknown]
  - Ataxia [Unknown]
  - Dysstasia [Unknown]
  - Gait disturbance [Unknown]
  - Iron deficiency [Unknown]

NARRATIVE: CASE EVENT DATE: 20160609
